FAERS Safety Report 16153873 (Version 1)
Quarter: 2019Q2

REPORT INFORMATION
  Report Type: Spontaneous
  Country: JP (occurrence: JP)
  Receive Date: 20190403
  Receipt Date: 20190403
  Transmission Date: 20190711
  Serious: Yes (Hospitalization, Other)
  Sender: FDA-Public Use
  Company Number: PHJP2016JP027628

PATIENT
  Age: 47 Year
  Sex: Female

DRUGS (1)
  1. TEGRETOL [Suspect]
     Active Substance: CARBAMAZEPINE
     Indication: EPILEPSY
     Dosage: UNK
     Route: 048

REACTIONS (8)
  - Pyrexia [Recovered/Resolved]
  - Human herpes virus 6 serology positive [Recovered/Resolved]
  - Drug reaction with eosinophilia and systemic symptoms [Recovered/Resolved]
  - Hepatic function abnormal [Recovered/Resolved]
  - Lymphocyte morphology abnormal [Recovered/Resolved]
  - Erythema [Recovered/Resolved]
  - Lymphadenopathy [Recovered/Resolved]
  - Swelling face [Recovered/Resolved]
